FAERS Safety Report 4433112-7 (Version None)
Quarter: 2004Q3

REPORT INFORMATION
  Report Type: 
  Country: None (occurrence: None)
  Receive Date: 20040823
  Receipt Date: 20040819
  Transmission Date: 20050211
  Serious: No
  Sender: FDA-Public Use
  Company Number: A400670102/AKO-4359-AE

PATIENT
  Sex: Female

DRUGS (1)
  1. IC-GREEN, 25MG, CARDINAL [Suspect]
     Dosage: ONCE, PERIPHERAL CATHETER
     Dates: start: 20040816

REACTIONS (6)
  - CELLULITIS [None]
  - ERYTHEMA [None]
  - HYPERSENSITIVITY [None]
  - INJECTION SITE DISCOLOURATION [None]
  - INSOMNIA [None]
  - PAIN [None]
